FAERS Safety Report 6111050-1 (Version None)
Quarter: 2009Q1

REPORT INFORMATION
  Report Type: 
  Country: None (occurrence: None)
  Receive Date: 20090311
  Receipt Date: 20090309
  Transmission Date: 20090719
  Serious: Yes (Hospitalization)
  Sender: FDA-Public Use
  Company Number: FR-ASTRAZENECA-2009CG00485

PATIENT
  Age: 24201 Day
  Sex: Female

DRUGS (11)
  1. NEXIUM [Suspect]
     Route: 048
     Dates: start: 20060101, end: 20081208
  2. TRILEPTAL [Suspect]
     Indication: EPILEPSY
     Route: 048
     Dates: start: 20060101, end: 20090119
  3. STABLON [Suspect]
     Route: 048
     Dates: start: 20060101, end: 20081208
  4. SPASMOPRIV [Suspect]
     Route: 048
     Dates: start: 20060101, end: 20081208
  5. SANMIGRAN [Suspect]
     Indication: MIGRAINE
     Route: 048
     Dates: start: 20060101, end: 20081208
  6. LEVOTHYROXINE SODIUM [Suspect]
     Indication: HYPOTHYROIDISM
     Route: 048
  7. ATARAX [Concomitant]
  8. TRIATEC [Concomitant]
  9. AVLOCARDYL [Concomitant]
  10. XANAX [Concomitant]
  11. IMOVANE [Concomitant]

REACTIONS (1)
  - CHOLESTASIS [None]
